FAERS Safety Report 15081245 (Version 1)
Quarter: 2018Q2

REPORT INFORMATION
  Report Type: Spontaneous
  Country: US (occurrence: GB)
  Receive Date: 20180628
  Receipt Date: 20180628
  Transmission Date: 20180711
  Serious: No
  Sender: FDA-Public Use
  Company Number: US-ACCORD-063172

PATIENT
  Age: 30 Year
  Sex: Male
  Weight: 89.36 kg

DRUGS (1)
  1. CLONAZEPAM ACCORD [Suspect]
     Active Substance: CLONAZEPAM
     Indication: GENERALISED ANXIETY DISORDER
     Dosage: CLONAZEPAM 1 MG ONE TABLET THREE TIMES DAILY AS NEEDED
     Route: 048
     Dates: end: 20171217

REACTIONS (3)
  - Drug ineffective [Unknown]
  - Product substitution issue [Unknown]
  - Incorrect dose administered [Unknown]
